FAERS Safety Report 5482396-5 (Version None)
Quarter: 2007Q4

REPORT INFORMATION
  Report Type: 
  Country: None (occurrence: None)
  Receive Date: 20071011
  Receipt Date: 20071002
  Transmission Date: 20080405
  Serious: Yes (Hospitalization, Disabling, Other)
  Sender: FDA-Public Use
  Company Number: B0487252A

PATIENT
  Age: 42 Year
  Sex: Male
  Weight: 65 kg

DRUGS (5)
  1. TELZIR [Suspect]
     Indication: HIV INFECTION
     Dosage: 700MG TWICE PER DAY
     Route: 048
     Dates: start: 20041101, end: 20070814
  2. TRUVADA [Suspect]
     Indication: HIV INFECTION
     Dosage: 1TAB PER DAY
     Route: 048
     Dates: start: 20060301, end: 20070814
  3. VIREAD [Concomitant]
     Indication: HIV INFECTION
     Route: 065
     Dates: start: 20041101, end: 20060301
  4. EMTRIVA [Concomitant]
     Indication: HIV INFECTION
     Route: 065
     Dates: start: 20041101, end: 20060301
  5. NORVIR [Concomitant]
     Indication: HIV INFECTION
     Route: 065
     Dates: start: 20041101, end: 20070814

REACTIONS (24)
  - ABNORMAL BEHAVIOUR [None]
  - ALANINE AMINOTRANSFERASE INCREASED [None]
  - BLOOD LACTATE DEHYDROGENASE INCREASED [None]
  - BULIMIA NERVOSA [None]
  - CEREBRAL HYGROMA [None]
  - CONFUSIONAL STATE [None]
  - CSF GLUCOSE DECREASED [None]
  - CSF GLUCOSE INCREASED [None]
  - CSF PROTEIN DECREASED [None]
  - CYTOMEGALOVIRUS TEST POSITIVE [None]
  - DELIRIUM [None]
  - DYSKINESIA [None]
  - ENCEPHALITIS [None]
  - FACIAL PALSY [None]
  - HEADACHE [None]
  - HYPERTONIA [None]
  - INTRACRANIAL HYPOTENSION [None]
  - LOGORRHOEA [None]
  - LYMPHADENOPATHY [None]
  - MANIA [None]
  - MENTAL IMPAIRMENT [None]
  - POST PROCEDURAL COMPLICATION [None]
  - PROGRESSIVE MULTIFOCAL LEUKOENCEPHALOPATHY [None]
  - TACHYPHRENIA [None]
